FAERS Safety Report 8608602-3 (Version None)
Quarter: 2012Q3

REPORT INFORMATION
  Report Type: 
  Country: None (occurrence: None)
  Receive Date: 20120821
  Receipt Date: 20120203
  Transmission Date: 20120928
  Serious: No
  Sender: FDA-Public Use
  Company Number: US-ASTELLAS-2012US001644

PATIENT
  Age: 70 Year
  Sex: Female

DRUGS (1)
  1. AMBISOME [Suspect]
     Indication: HISTOPLASMOSIS
     Dosage: UNK
     Route: 065
     Dates: start: 20120203

REACTIONS (3)
  - OFF LABEL USE [None]
  - NO ADVERSE EVENT [None]
  - INCORRECT STORAGE OF DRUG [None]
